FAERS Safety Report 4667888-0 (Version None)
Quarter: 2005Q2

REPORT INFORMATION
  Report Type: 
  Country: None (occurrence: None)
  Receive Date: 20050520
  Receipt Date: 20050510
  Transmission Date: 20051028
  Serious: Yes (Hospitalization)
  Sender: FDA-Public Use
  Company Number: HU-ROCHE-404344

PATIENT
  Age: 59 Year
  Sex: Male

DRUGS (3)
  1. BONDRONAT [Suspect]
     Dosage: STRENGTH REPORTED AS: 2MG/2ML.
     Route: 042
     Dates: start: 20050318, end: 20050429
  2. LODRONAT [Suspect]
     Route: 048
     Dates: start: 20050216, end: 20050316
  3. ESTRACYT [Concomitant]
     Route: 042

REACTIONS (2)
  - ANAEMIA [None]
  - DISSEMINATED INTRAVASCULAR COAGULATION [None]
